FAERS Safety Report 6501334-7 (Version None)
Quarter: 2009Q4

REPORT INFORMATION
  Report Type: 
  Country: None (occurrence: None)
  Receive Date: 20091215
  Receipt Date: 20091215
  Transmission Date: 20100525
  Serious: Yes (Disabling, Other)
  Sender: FDA-Public Use
  Company Number: None

PATIENT
  Age: 19 Year
  Sex: Female
  Weight: 77.1115 kg

DRUGS (1)
  1. MARINA IDU [Suspect]
     Indication: CONTRACEPTION
     Dates: start: 20090311, end: 20090905

REACTIONS (4)
  - AMENORRHOEA [None]
  - DYSPAREUNIA [None]
  - INFERTILITY FEMALE [None]
  - PAIN [None]
